FAERS Safety Report 9007443 (Version 1)
Quarter: 2013Q1

REPORT INFORMATION
  Report Type: Spontaneous
  Country: US (occurrence: US)
  Receive Date: 20130110
  Receipt Date: 20130110
  Transmission Date: 20140127
  Serious: Yes (Disabling)
  Sender: FDA-Public Use
  Company Number: US-009507513-1301USA003042

PATIENT
  Age: 5 Year
  Sex: Female

DRUGS (5)
  1. SINGULAIR [Suspect]
     Route: 048
  2. NEXIUM [Suspect]
     Route: 048
  3. IRON (UNSPECIFIED) [Suspect]
     Route: 048
  4. REDIPRED [Concomitant]
     Route: 048
  5. NEOCATE [Concomitant]
     Route: 048

REACTIONS (2)
  - Coeliac disease [Unknown]
  - Diarrhoea [Unknown]
